FAERS Safety Report 8999779 (Version 1)
Quarter: 2013Q1

REPORT INFORMATION
  Report Type: Report from Study
  Country: IT (occurrence: IT)
  Receive Date: 20130102
  Receipt Date: 20130102
  Transmission Date: 20140127
  Serious: Yes (Other)
  Sender: FDA-Public Use
  Company Number: IT-ROCHE-1165933

PATIENT
  Sex: 0

DRUGS (6)
  1. TRASTUZUMAB [Suspect]
     Indication: GASTRIC CANCER
     Route: 042
     Dates: start: 20120904, end: 20120904
  2. FLUOROURACIL [Concomitant]
     Route: 042
     Dates: start: 20120402, end: 20120904
  3. LEDERFOLIN [Concomitant]
     Route: 042
     Dates: start: 20120402, end: 20120904
  4. CISPLATIN [Concomitant]
     Route: 042
     Dates: start: 20120402, end: 20120904
  5. ALOXI [Concomitant]
     Route: 042
     Dates: start: 20120402, end: 20120904
  6. DELLAMETHASONE [Concomitant]
     Route: 042
     Dates: start: 20120402, end: 20120904

REACTIONS (4)
  - Tremor [Recovered/Resolved with Sequelae]
  - Chest pain [Recovered/Resolved with Sequelae]
  - Erythema [Recovered/Resolved with Sequelae]
  - Tachycardia [Recovered/Resolved with Sequelae]
